FAERS Safety Report 10625653 (Version 2)
Quarter: 2014Q4

REPORT INFORMATION
  Report Type: Spontaneous
  Country: NL (occurrence: NL)
  Receive Date: 20141204
  Receipt Date: 20141217
  Transmission Date: 20150529
  Serious: Yes (Death, Hospitalization)
  Sender: FDA-Public Use
  Company Number: NL-ACTELION-A-CH2014-108637

PATIENT
  Age: 68 Year
  Sex: Male
  Weight: 75 kg

DRUGS (1)
  1. VELETRI [Suspect]
     Active Substance: EPOPROSTENOL
     Indication: PULMONARY ARTERIAL HYPERTENSION
     Dosage: 2000 MCG, CONT INFUS
     Route: 042
     Dates: start: 20140618, end: 20141117

REACTIONS (5)
  - Haemoptysis [Fatal]
  - Right ventricular failure [Unknown]
  - Pneumonia [Fatal]
  - Left ventricular failure [Fatal]
  - Renal impairment [Unknown]

NARRATIVE: CASE EVENT DATE: 20141118
